FAERS Safety Report 5061247-7 (Version None)
Quarter: 2006Q3

REPORT INFORMATION
  Report Type: 
  Country: None (occurrence: None)
  Receive Date: 20060725
  Receipt Date: 20060714
  Transmission Date: 20061208
  Serious: Yes (Other)
  Sender: FDA-Public Use
  Company Number: US-JNJFOC-20060703408

PATIENT
  Age: 6 Decade
  Sex: Female

DRUGS (2)
  1. TOPAMAX [Suspect]
     Indication: NEURALGIA
     Route: 048
  2. EYE DROPS [Concomitant]

REACTIONS (4)
  - BLINDNESS [None]
  - EYE PAIN [None]
  - INTRAOCULAR PRESSURE INCREASED [None]
  - RETINAL DISORDER [None]
